FAERS Safety Report 13695426 (Version 7)
Quarter: 2019Q4

REPORT INFORMATION
  Report Type: Report from Study
  Country: US (occurrence: US)
  Receive Date: 20170627
  Receipt Date: 20191004
  Transmission Date: 20200122
  Serious: Yes (Hospitalization)
  Sender: FDA-Public Use
  Company Number: US-ACTELION-A-US2016-146775

PATIENT
  Age: 78 Year
  Sex: Female
  Weight: 74.83 kg

DRUGS (4)
  1. TYVASO [Concomitant]
     Active Substance: TREPROSTINIL
  2. SILDENAFIL CITRATE. [Concomitant]
     Active Substance: SILDENAFIL CITRATE
  3. TRACLEER [Suspect]
     Active Substance: BOSENTAN
     Dosage: 125 MG, BID
     Route: 048
     Dates: start: 20130205
  4. TRACLEER [Suspect]
     Active Substance: BOSENTAN
     Indication: PULMONARY HYPERTENSION
     Dosage: 125 MG, BID
     Route: 048
     Dates: start: 20130205

REACTIONS (12)
  - Transfusion [Unknown]
  - Influenza [Unknown]
  - Therapy non-responder [Unknown]
  - Transient ischaemic attack [Unknown]
  - Abdominal pain upper [Unknown]
  - Hypertension [Unknown]
  - Cardiac disorder [Unknown]
  - Chest pain [Unknown]
  - Fatigue [Not Recovered/Not Resolved]
  - Anaemia [Recovered/Resolved]
  - Rectal haemorrhage [Recovered/Resolved]
  - Dyspnoea [Unknown]

NARRATIVE: CASE EVENT DATE: 20190109
